FAERS Safety Report 7290365-8 (Version None)
Quarter: 2011Q1

REPORT INFORMATION
  Report Type: 
  Country: None (occurrence: None)
  Receive Date: 20110214
  Receipt Date: 20110208
  Transmission Date: 20110831
  Serious: Yes (Other)
  Sender: FDA-Public Use
  Company Number: NL-BAXTER-2010BH030931

PATIENT
  Age: 60 Year
  Sex: Female

DRUGS (22)
  1. GAMMAGARD LIQUID [Suspect]
     Route: 042
     Dates: start: 20101209, end: 20101209
  2. OMEPRAZOLE [Concomitant]
  3. GAMMAGARD LIQUID [Suspect]
     Route: 042
     Dates: start: 20101223, end: 20101223
  4. BUMETANIDE [Concomitant]
  5. DOMPERIDONE [Concomitant]
  6. CINNARIZINE [Concomitant]
  7. LIPITOR [Concomitant]
  8. FLUCONAZOLE [Concomitant]
  9. QVAR 40 [Concomitant]
  10. TIOTROPIUM [Concomitant]
  11. METAMUCIL-2 [Concomitant]
  12. RANITIDINE [Concomitant]
  13. GAMMAGARD LIQUID [Suspect]
     Indication: DECREASED IMMUNE RESPONSIVENESS
     Route: 042
     Dates: start: 20101209, end: 20101209
  14. FORADIL [Concomitant]
  15. NASONEX [Concomitant]
  16. DYDROGESTERONE TAB [Concomitant]
  17. AMITRIPTYLINE HCL [Concomitant]
  18. GAMMAGARD LIQUID [Suspect]
     Route: 042
     Dates: start: 20101223, end: 20101223
  19. ESTRADIOL [Concomitant]
  20. GAMMAGARD LIQUID [Suspect]
     Route: 042
     Dates: start: 20100413
  21. SOTALOL HCL [Concomitant]
  22. AERIUS [Concomitant]

REACTIONS (2)
  - PYREXIA [None]
  - BRONCHITIS [None]
